FAERS Safety Report 8303727-4 (Version None)
Quarter: 2012Q1

REPORT INFORMATION
  Report Type: 
  Country: None (occurrence: None)
  Receive Date: 20120326
  Receipt Date: 20111007
  Transmission Date: 20120608
  Serious: Yes (Hospitalization)
  Sender: FDA-Public Use
  Company Number: PHEH2011US05755

PATIENT
  Age: 70 Year
  Sex: Female

DRUGS (12)
  1. VITAMIN E [Concomitant]
  2. B COMPLEX (NOCITINAMIDE, PYRIDOXINE HYDROCHLORIDE, RIBOFLAVIN, THIAMIN [Concomitant]
  3. PHYTONADIONE [Concomitant]
  4. GLUCOSAMINE/CHONDROITIN (CHONDROITIN, GLUCOSAMINE, METHYLSULFONYLMETHA [Concomitant]
  5. VITAMIN D [Concomitant]
  6. ASCORBIC ACID [Concomitant]
  7. CALCIUM D SANDOZ (CALCIUM, COLECALCIFEROL) [Concomitant]
  8. TASIGNA [Suspect]
     Dosage: 300 MG, BID, ORAL
     Route: 048
  9. VITAMIN A [Concomitant]
  10. COQ10 (UBIDECARENONE) [Concomitant]
  11. CYMBALTA [Concomitant]
  12. MULTI-VIT (VITAMINS NOS) [Concomitant]

REACTIONS (3)
  - ABDOMINAL PAIN UPPER [None]
  - UNEVALUABLE EVENT [None]
  - HYPERBILIRUBINAEMIA [None]
